FAERS Safety Report 14019785 (Version 2)
Quarter: 2017Q4

REPORT INFORMATION
  Report Type: Report from Study
  Country: CA (occurrence: CA)
  Receive Date: 20170928
  Receipt Date: 20171129
  Transmission Date: 20180321
  Serious: Yes (Hospitalization)
  Sender: FDA-Public Use
  Company Number: CA-JNJFOC-20170302792

PATIENT
  Age: 60 Year
  Sex: Male
  Weight: 72 kg

DRUGS (2)
  1. SIMPONI [Suspect]
     Active Substance: GOLIMUMAB
     Indication: RHEUMATOID ARTHRITIS
     Route: 042
     Dates: start: 201410
  2. SIMPONI [Suspect]
     Active Substance: GOLIMUMAB
     Indication: RHEUMATOID ARTHRITIS
     Route: 042

REACTIONS (4)
  - Product use issue [Unknown]
  - Off label use [Unknown]
  - Incorrect dose administered [Unknown]
  - Cystitis [Not Recovered/Not Resolved]

NARRATIVE: CASE EVENT DATE: 201410
